FAERS Safety Report 4344846-7 (Version None)
Quarter: 2004Q2

REPORT INFORMATION
  Report Type: 
  Country: None (occurrence: None)
  Receive Date: 20040420
  Receipt Date: 20040408
  Transmission Date: 20050107
  Serious: Yes (Life-Threatening)
  Sender: FDA-Public Use
  Company Number: 2004-112319-NL

PATIENT
  Age: 34 Year
  Sex: Male

DRUGS (15)
  1. VECURONIUM BROMIDE [Suspect]
     Indication: INDUCTION OF ANAESTHESIA
     Dosage: 1 MG ONCE / 9 MG ONCE; INTRAVENOUS (NOS)
     Route: 042
     Dates: start: 20040114, end: 20040114
  2. VECURONIUM BROMIDE [Suspect]
     Indication: INDUCTION OF ANAESTHESIA
     Dosage: 1 MG ONCE / 9 MG ONCE; INTRAVENOUS (NOS)
     Route: 042
     Dates: start: 20040114, end: 20040114
  3. THIOPENTAL SODIUM [Suspect]
     Indication: INDUCTION AND MAINTENANCE OF ANAESTHESIA
     Dosage: 50 MG ONCE / 150 MG ONCE; INTRAVENOUS (NOS)
     Route: 042
     Dates: start: 20040114, end: 20040114
  4. THIOPENTAL SODIUM [Suspect]
     Indication: INDUCTION AND MAINTENANCE OF ANAESTHESIA
     Dosage: 50 MG ONCE / 150 MG ONCE; INTRAVENOUS (NOS)
     Route: 042
     Dates: start: 20040114, end: 20040114
  5. FENTANYL CITRATE [Suspect]
     Indication: INDUCTION AND MAINTENANCE OF ANAESTHESIA
     Dosage: 100 UG ONCE; INTRAVENOUS (NOS)
     Route: 042
     Dates: start: 20040114, end: 20040114
  6. PROPOFOL [Suspect]
     Indication: INDUCTION AND MAINTENANCE OF ANAESTHESIA
     Dosage: 140 MG ONCE; INTRAVENOUS (NOS)
     Route: 042
     Dates: start: 20040114, end: 20040114
  7. SEVOFLURANE [Concomitant]
  8. CEFCAPENE PIVOXIL HYDROCHLORIDE [Concomitant]
  9. LOXOPROFEN SODIUM [Concomitant]
  10. REBAMIPIDE [Concomitant]
  11. CARBOCISTEINE [Concomitant]
  12. CEFOTIAM HYDROCHLORIDE [Concomitant]
  13. ASCORBIC ACID [Concomitant]
  14. VITAMEDIN INTRAVENOUS [Concomitant]
  15. VEEN-F [Concomitant]

REACTIONS (6)
  - ANAESTHETIC COMPLICATION [None]
  - ANAPHYLACTIC REACTION [None]
  - BRONCHOSPASM [None]
  - NAUSEA [None]
  - SKIN TEST POSITIVE [None]
  - VOMITING [None]
